FAERS Safety Report 6244245-7 (Version None)
Quarter: 2009Q2

REPORT INFORMATION
  Report Type: 
  Country: None (occurrence: None)
  Receive Date: 20090619
  Receipt Date: 20090120
  Transmission Date: 20091009
  Serious: Yes (Hospitalization)
  Sender: FDA-Public Use
  Company Number: 2009PL000080

PATIENT
  Age: 36 Year
  Sex: Male
  Weight: 107.0489 kg

DRUGS (3)
  1. IMURAN [Suspect]
     Indication: CROHN'S DISEASE
     Dosage: 2.5 MG/KG;QD;PO
     Route: 048
     Dates: start: 20060428, end: 20060513
  2. PLACEBO (PLACEBO) LYOPHILIZED POWDER [Suspect]
     Indication: CROHN'S DISEASE
     Dosage: 5 MG/KG;QOW;IV
     Route: 042
     Dates: start: 20060428
  3. COLAZAL [Concomitant]

REACTIONS (1)
  - PANCREATITIS [None]
